FAERS Safety Report 17857302 (Version 1)
Quarter: 2020Q2

REPORT INFORMATION
  Report Type: Report from Study
  Country: IR (occurrence: IR)
  Receive Date: 20200603
  Receipt Date: 20200603
  Transmission Date: 20200714
  Serious: Yes (Death)
  Sender: FDA-Public Use
  Company Number: IR-NOVOPROD-730410

PATIENT
  Age: 74 Year
  Sex: Female

DRUGS (2)
  1. NOVORAPID [Suspect]
     Active Substance: INSULIN ASPART
     Indication: TYPE 2 DIABETES MELLITUS
     Dosage: 36 IU, QD (BREAKFAST 6 IU , LUNCH 12 IU , DINNER 18 IU)
     Route: 058
  2. LANTUS [Concomitant]
     Active Substance: INSULIN GLARGINE
     Indication: TYPE 2 DIABETES MELLITUS
     Dosage: 15 IU EVERY EVENING AT 6 P.M.

REACTIONS (2)
  - Renal failure [Fatal]
  - Hypoglycaemia [Fatal]
